FAERS Safety Report 7395146-2 (Version None)
Quarter: 2011Q1

REPORT INFORMATION
  Report Type: 
  Country: None (occurrence: None)
  Receive Date: 20110325
  Receipt Date: 20110311
  Transmission Date: 20110831
  Serious: Yes (Hospitalization, Other)
  Sender: FDA-Public Use
  Company Number: 027015

PATIENT
  Sex: Female
  Weight: 58.2 kg

DRUGS (3)
  1. FENTANYL [Concomitant]
  2. MIDANIUM /00634101/ [Concomitant]
  3. CERTOLIZUMAB PEGOL (CERTOLIZUMAB PEGOL) [Suspect]
     Indication: CROHN'S DISEASE
     Dosage: (400 MG 1X/2 WEEKS SUBCUTANEOUS)
     Route: 058
     Dates: start: 20090522

REACTIONS (5)
  - PYREXIA [None]
  - CONDITION AGGRAVATED [None]
  - ENTEROVESICAL FISTULA [None]
  - ABDOMINAL PAIN [None]
  - URINARY TRACT INFECTION [None]
